FAERS Safety Report 8574158-7 (Version None)
Quarter: 2012Q2

REPORT INFORMATION
  Report Type: 
  Country: None (occurrence: None)
  Receive Date: 20120423
  Receipt Date: 20100326
  Transmission Date: 20120825
  Serious: Yes (Hospitalization, Other)
  Sender: FDA-Public Use
  Company Number: PHEH2010US02944

PATIENT
  Age: 49 Year
  Sex: Female
  Weight: 61.2 kg

DRUGS (3)
  1. PERCOCET [Concomitant]
  2. EXJADE [Suspect]
     Indication: SERUM FERRITIN INCREASED
     Dosage: 500 MG, QD, ORAL
     Route: 048
     Dates: start: 20100129
  3. HYDREA [Concomitant]

REACTIONS (2)
  - PAIN [None]
  - SICKLE CELL ANAEMIA WITH CRISIS [None]
